FAERS Safety Report 18417505 (Version 1)
Quarter: 2020Q4

REPORT INFORMATION
  Report Type: Spontaneous
  Country: US (occurrence: US)
  Receive Date: 20201022
  Receipt Date: 20201022
  Transmission Date: 20210114
  Serious: No
  Sender: FDA-Public Use
  Company Number: US-SEATTLE GENETICS-2020SGN03659

PATIENT
  Sex: Female

DRUGS (2)
  1. TUKYSA [Suspect]
     Active Substance: TUCATINIB
     Indication: BREAST CANCER FEMALE
  2. XELODA [Concomitant]
     Active Substance: CAPECITABINE
     Indication: BREAST CANCER FEMALE

REACTIONS (28)
  - Eating disorder [Unknown]
  - Incontinence [Unknown]
  - Memory impairment [Unknown]
  - Thirst [Unknown]
  - Panic attack [Unknown]
  - Weight decreased [Unknown]
  - Diarrhoea [Recovering/Resolving]
  - Feeling abnormal [Unknown]
  - Somnolence [Unknown]
  - Syncope [Unknown]
  - Depression [Unknown]
  - Headache [Unknown]
  - Muscle spasms [Unknown]
  - Self-injurious ideation [Unknown]
  - Hypotension [Unknown]
  - Unevaluable event [Unknown]
  - Abdominal pain upper [Unknown]
  - Decreased appetite [Unknown]
  - Vomiting [Recovering/Resolving]
  - Product dose omission issue [Unknown]
  - Dizziness [Unknown]
  - Anxiety [Unknown]
  - Dehydration [Unknown]
  - Pain [Unknown]
  - Jaw operation [Unknown]
  - Sinus disorder [Unknown]
  - Depressed mood [Unknown]
  - Amnesia [Unknown]
